FAERS Safety Report 7590929-8 (Version None)
Quarter: 2011Q3

REPORT INFORMATION
  Report Type: 
  Country: None (occurrence: None)
  Receive Date: 20110705
  Receipt Date: 20110627
  Transmission Date: 20111222
  Serious: Yes (Hospitalization)
  Sender: FDA-Public Use
  Company Number: PHHO2010JP19714

PATIENT
  Sex: Male

DRUGS (20)
  1. NEORAL [Suspect]
     Dosage: 125 MG
     Route: 048
     Dates: start: 20101116
  2. MEDROL [Suspect]
     Indication: RENAL TRANSPLANT
     Dosage: 4 MG
     Route: 048
     Dates: start: 20090522, end: 20101013
  3. MEDROL [Suspect]
     Dosage: 8 MG
     Route: 048
     Dates: start: 20101207
  4. NITROGEN LIQUID [Concomitant]
     Indication: SKIN PAPILLOMA
  5. TAGAMET [Concomitant]
  6. MAGNESIUM OXIDE [Concomitant]
     Indication: CONSTIPATION
  7. DIOVAN [Concomitant]
     Indication: HYPERTENSION
  8. DIFFERIN [Concomitant]
     Indication: SKIN PAPILLOMA
  9. SANDIMMUNE [Suspect]
     Indication: RENAL TRANSPLANT
     Dosage: 20 MG
     Route: 042
     Dates: start: 20090513, end: 20090501
  10. METHYLPREDNISOLONE SODIUM SUCCINATE [Concomitant]
     Indication: RENAL TRANSPLANT
  11. ALOSENN [Concomitant]
     Indication: CONSTIPATION
  12. CERTICAN [Suspect]
     Indication: RENAL TRANSPLANT
     Dosage: 0.75 MG
     Route: 048
     Dates: start: 20090514
  13. CERTICAN [Suspect]
     Dosage: 1.5 MG
     Route: 048
     Dates: start: 20100407
  14. NEORAL [Suspect]
     Indication: RENAL TRANSPLANT
     Dosage: 100 MG
     Route: 048
     Dates: start: 20090517
  15. ISODINE [Concomitant]
  16. BASEN [Concomitant]
     Indication: GLUCOSE TOLERANCE IMPAIRED
  17. LIPITOR [Concomitant]
     Indication: HYPERLIPIDAEMIA
  18. DALACIN T [Concomitant]
     Indication: ACNE
  19. KERATINAMIN [Concomitant]
     Indication: HYPERKERATOSIS PALMARIS AND PLANTARIS
  20. ASPIRIN [Concomitant]

REACTIONS (6)
  - PYREXIA [None]
  - CYTOMEGALOVIRUS INFECTION [None]
  - INTERSTITIAL LUNG DISEASE [None]
  - PNEUMOCYSTIS JIROVECI PNEUMONIA [None]
  - PNEUMOMEDIASTINUM [None]
  - DYSPNOEA [None]
